FAERS Safety Report 4810540-9 (Version None)
Quarter: 2005Q4

REPORT INFORMATION
  Report Type: 
  Country: None (occurrence: None)
  Receive Date: 20051025
  Receipt Date: 20051025
  Transmission Date: 20060501
  Serious: Yes (Other)
  Sender: FDA-Public Use
  Company Number: None

PATIENT
  Age: 52 Year
  Sex: Female
  Weight: 90.7194 kg

DRUGS (5)
  1. LYRICA [Suspect]
     Indication: MIGRAINE
     Dosage: 75 MG, 2 DOSES ONLY
     Dates: start: 20051020, end: 20051021
  2. PREMARIN [Concomitant]
  3. WELLBUTRIN SR [Concomitant]
  4. XANAX [Concomitant]
  5. TOPAMAX [Concomitant]

REACTIONS (11)
  - AFFECT LABILITY [None]
  - ANXIETY [None]
  - BLOOD PRESSURE SYSTOLIC INCREASED [None]
  - CONDITION AGGRAVATED [None]
  - CRYING [None]
  - FEAR [None]
  - FEELING ABNORMAL [None]
  - HEADACHE [None]
  - INCOHERENT [None]
  - MIGRAINE [None]
  - TREMOR [None]
